FAERS Safety Report 8286765-X (Version None)
Quarter: 2012Q2

REPORT INFORMATION
  Report Type: 
  Country: None (occurrence: None)
  Receive Date: 20120411
  Receipt Date: 20120329
  Transmission Date: 20120825
  Serious: Yes (Disabling, Other)
  Sender: FDA-Public Use
  Company Number: AUR-APL-2012-01691

PATIENT
  Age: 70 Year
  Sex: Female
  Weight: 63.49 kg

DRUGS (3)
  1. PLAVIX [Concomitant]
  2. MELOXICAM [Suspect]
     Indication: ARTHRITIS
     Dosage: 15 MG (15 MG, 1 IN 1 D),ORAL
     Route: 048
     Dates: start: 20120101, end: 20120317
  3. CELEBREX [Suspect]
     Indication: ARTHRITIS
     Dosage: 200 MG (200 MG, 1 IN 1 D),ORAL
     Route: 048
     Dates: end: 20120101

REACTIONS (4)
  - ARTHRITIS [None]
  - MUSCLE SPASMS [None]
  - CONDITION AGGRAVATED [None]
  - HEADACHE [None]
